FAERS Safety Report 17302817 (Version 1)
Quarter: 2020Q1

REPORT INFORMATION
  Report Type: Spontaneous
  Country: DE (occurrence: DE)
  Receive Date: 20200122
  Receipt Date: 20200122
  Transmission Date: 20200409
  Serious: Yes (Disabling)
  Sender: FDA-Public Use
  Company Number: DE-BAUSCH-BL-2020-001586

PATIENT
  Age: 62 Year
  Sex: Female

DRUGS (5)
  1. PROTOPIC [Suspect]
     Active Substance: TACROLIMUS
     Indication: ECZEMA
     Route: 061
     Dates: start: 20190930, end: 20191014
  2. ELIDEL [Suspect]
     Active Substance: PIMECROLIMUS
     Indication: ECZEMA
     Route: 061
     Dates: end: 20191014
  3. ELIDEL [Suspect]
     Active Substance: PIMECROLIMUS
     Indication: DERMATITIS ATOPIC
     Route: 065
  4. PROTOPIC [Suspect]
     Active Substance: TACROLIMUS
     Indication: PRODUCT USE IN UNAPPROVED INDICATION
  5. L-THYROXIN [Concomitant]
     Active Substance: LEVOTHYROXINE SODIUM
     Indication: PRODUCT USED FOR UNKNOWN INDICATION

REACTIONS (3)
  - Skin burning sensation [Not Recovered/Not Resolved]
  - Loss of personal independence in daily activities [Unknown]
  - Product use in unapproved indication [Unknown]
